FAERS Safety Report 5219317-6 (Version None)
Quarter: 2007Q1

REPORT INFORMATION
  Report Type: 
  Country: None (occurrence: None)
  Receive Date: 20070125
  Receipt Date: 20070110
  Transmission Date: 20070707
  Serious: Yes (Hospitalization)
  Sender: FDA-Public Use
  Company Number: FR-BRISTOL-MYERS SQUIBB COMPANY-13643127

PATIENT
  Age: 70 Year
  Sex: Male

DRUGS (10)
  1. GLUCOPHAGE [Suspect]
     Indication: DIABETES MELLITUS
     Route: 048
     Dates: start: 20060919, end: 20060921
  2. PREVISCAN [Suspect]
     Indication: ATRIAL FIBRILLATION
     Dates: end: 20060921
  3. CORDARONE [Suspect]
     Indication: ATRIAL FIBRILLATION
     Dates: end: 20060921
  4. TELFAST [Concomitant]
     Indication: DERMATITIS CONTACT
     Route: 048
     Dates: end: 20060911
  5. PROSCAR [Concomitant]
  6. ACETAMINOPHEN [Concomitant]
  7. OMEPRAZOLE [Concomitant]
  8. ASPIRIN [Concomitant]
  9. COUMADIN [Concomitant]
     Dates: start: 20060927, end: 20060930
  10. FENOFIBRATE [Concomitant]

REACTIONS (3)
  - ANGIOEDEMA [None]
  - EOSINOPHILIA [None]
  - HYPERTHYROIDISM [None]
